FAERS Safety Report 4896456-0 (Version None)
Quarter: 2006Q1

REPORT INFORMATION
  Report Type: 
  Country: None (occurrence: None)
  Receive Date: 20060126
  Receipt Date: 20060109
  Transmission Date: 20060701
  Serious: Yes (Hospitalization)
  Sender: FDA-Public Use
  Company Number: L05-USA-00512-01

PATIENT
  Age: 72 Year
  Sex: Female

DRUGS (15)
  1. MEMANTINE HCL [Suspect]
     Dosage: 15 MG QD PO
     Route: 048
     Dates: start: 20040122, end: 20040124
  2. MEMANTINE HCL [Suspect]
     Dates: start: 20040101
  3. MEMANTINE HCL [Suspect]
     Dosage: 5 MG QD PO
     Route: 048
     Dates: start: 20040101, end: 20040107
  4. MEMANTINE HCL [Suspect]
     Dosage: 5 MG BID PO
     Route: 048
     Dates: start: 20040108, end: 20040121
  5. SERTRALINE [Suspect]
     Dosage: 50 MG QD
     Dates: start: 19940101, end: 20040110
  6. SERTRALINE [Suspect]
     Dosage: 50 MG QD
     Dates: start: 20040101
  7. OLANZAPINE [Suspect]
     Dosage: 5 MG QHS
     Dates: start: 20030601, end: 20040101
  8. OLANZAPINE [Suspect]
     Dosage: 5 MG QHS
     Dates: start: 20040101
  9. RIVASTIGMINE TARTRATE [Suspect]
     Dosage: 4.5 MG BID
     Dates: start: 20010101, end: 20040101
  10. RIVASTIGMINE TARTRATE [Suspect]
     Dates: start: 20040101
  11. LATANOPROST [Concomitant]
  12. AMLODIPINE BESYLATE (AMLODIPINE BESILATE) [Concomitant]
  13. VITAMIN B COMPLEX CAP [Concomitant]
  14. VITAMIN E (VITAMIN E /001105/) [Concomitant]
  15. ASPIRIN [Concomitant]

REACTIONS (8)
  - CEREBRAL ATROPHY [None]
  - CEREBRAL ISCHAEMIA [None]
  - CREATININE RENAL CLEARANCE DECREASED [None]
  - FALL [None]
  - GRAND MAL CONVULSION [None]
  - LOSS OF CONSCIOUSNESS [None]
  - POSTICTAL HEADACHE [None]
  - SCREAMING [None]
